FAERS Safety Report 18223017 (Version 1)
Quarter: 2020Q3

REPORT INFORMATION
  Report Type: Spontaneous
  Country: US (occurrence: US)
  Receive Date: 20200902
  Receipt Date: 20200902
  Transmission Date: 20201103
  Serious: No
  Sender: FDA-Public Use
  Company Number: US-PERRIGO-20US011795

PATIENT
  Sex: Female

DRUGS (4)
  1. LISINOPRIL. [Concomitant]
     Active Substance: LISINOPRIL
     Indication: HYPERTENSION
     Dosage: UNK
     Route: 065
  2. DICLOFENAC SODIUM. [Suspect]
     Active Substance: DICLOFENAC SODIUM
     Indication: PRODUCT USED FOR UNKNOWN INDICATION
     Dosage: 1 APPLICATION, SINGLE
     Route: 061
     Dates: start: 20200717, end: 20200717
  3. AMLODIPINE [Concomitant]
     Active Substance: AMLODIPINE BESYLATE
     Indication: HYPERTENSION
     Dosage: UNK
     Route: 065
  4. ROSUVASTATIN. [Concomitant]
     Active Substance: ROSUVASTATIN
     Indication: BLOOD CHOLESTEROL INCREASED
     Dosage: UNK
     Route: 065

REACTIONS (13)
  - Neck pain [Unknown]
  - Dehydration [Unknown]
  - Anxiety [Unknown]
  - Hypoaesthesia [Unknown]
  - Product administered at inappropriate site [Unknown]
  - Blood pressure increased [Unknown]
  - Headache [Unknown]
  - Rash [Unknown]
  - Skin burning sensation [Unknown]
  - Paraesthesia [Unknown]
  - Decreased appetite [Unknown]
  - Feeling abnormal [Unknown]
  - Overdose [Unknown]

NARRATIVE: CASE EVENT DATE: 202008
